FAERS Safety Report 8179044-2 (Version None)
Quarter: 2012Q1

REPORT INFORMATION
  Report Type: 
  Country: None (occurrence: None)
  Receive Date: 20120302
  Receipt Date: 20120220
  Transmission Date: 20120608
  Serious: Yes (Other)
  Sender: FDA-Public Use
  Company Number: DE-ROCHE-768480

PATIENT
  Sex: Female
  Weight: 100 kg

DRUGS (6)
  1. PREDNISOLONE [Concomitant]
     Indication: RHEUMATOID ARTHRITIS
     Route: 048
  2. PANTOPRAZOLE [Concomitant]
     Dates: start: 20060101
  3. LISINOPRIL [Concomitant]
  4. ACTEMRA [Suspect]
     Route: 042
  5. DICLOFENAC SODIUM [Concomitant]
     Indication: RHEUMATOID ARTHRITIS
     Route: 048
  6. ACTEMRA [Suspect]
     Indication: RHEUMATOID ARTHRITIS
     Route: 042
     Dates: start: 20100426, end: 20110208

REACTIONS (4)
  - SKIN INFECTION [None]
  - HAEMATOMA INFECTION [None]
  - SKIN ULCER [None]
  - FALL [None]
